FAERS Safety Report 7868981 (Version 3)
Quarter: 2014Q1

REPORT INFORMATION
  Report Type: Spontaneous
  Country: JP (occurrence: JP)
  Receive Date: 20110324
  Receipt Date: 20140303
  Transmission Date: 20141002
  Serious: Yes (Death, Other)
  Sender: FDA-Public Use
  Company Number: JP-ASTELLAS-2011JP001958

PATIENT
  Age: 15 Year
  Sex: Male

DRUGS (11)
  1. PROGRAF [Suspect]
     Indication: PROPHYLAXIS AGAINST GRAFT VERSUS HOST DISEASE
     Dosage: UNK
     Route: 041
     Dates: start: 200808
  2. METHOTREXATE [Concomitant]
     Indication: PROPHYLAXIS AGAINST GRAFT VERSUS HOST DISEASE
     Dosage: 15 MG/M2, UNKNOWN/D
     Route: 065
     Dates: start: 20080808, end: 20080808
  3. METHOTREXATE [Concomitant]
     Dosage: 10 MG/M2, UNKNOWN/D
     Route: 065
     Dates: start: 20080810, end: 20080810
  4. METHOTREXATE [Concomitant]
     Dosage: 10 MG/M2, UNKNOWN/D
     Route: 065
     Dates: start: 20080813, end: 20080813
  5. METHOTREXATE [Concomitant]
     Dosage: 10 MG/M2, UNKNOWN/D
     Route: 065
     Dates: start: 20080818, end: 20080818
  6. BUSULFAN [Concomitant]
     Indication: PREMEDICATION
     Dosage: 16 DF, UNKNOWN/D
     Route: 065
     Dates: start: 2008
  7. MELPHALAN [Concomitant]
     Indication: PREMEDICATION
     Dosage: UNK
     Route: 065
     Dates: start: 2008
  8. CEPHEM ANTIBIOTICS [Concomitant]
     Indication: PROPHYLAXIS
     Route: 065
  9. ANTIFUNGAL DRUGS [Concomitant]
     Indication: PROPHYLAXIS
     Dosage: UNK
     Route: 065
     Dates: start: 200808
  10. GRANULOCYTE COLONY-STIMULATING FACTOR NOS [Concomitant]
     Dosage: UNK
     Route: 065
     Dates: start: 20080812
  11. CANDESARTAN                        /01349502/ [Concomitant]
     Indication: PROPHYLAXIS
     Dosage: UNK
     Route: 048
     Dates: start: 2008

REACTIONS (4)
  - Drug ineffective [Unknown]
  - Acute graft versus host disease [Fatal]
  - Chronic graft versus host disease [Unknown]
  - Klebsiella sepsis [Fatal]
